FAERS Safety Report 17114638 (Version 1)
Quarter: 2019Q4

REPORT INFORMATION
  Report Type: Spontaneous
  Country: US (occurrence: US)
  Receive Date: 20191112
  Receipt Date: 20191112
  Transmission Date: 20200122
  Serious: Yes (Hospitalization)
  Sender: FDA-Public Use
  Company Number: None

PATIENT
  Sex: Male
  Weight: 116.6 kg

DRUGS (6)
  1. MERCAPTOPURINE. [Concomitant]
     Active Substance: MERCAPTOPURINE
  2. PEG-L-ASPARAGINASE PEGASPARGASE, ONCOSPAR [Concomitant]
  3. METHOTREXATE. [Suspect]
     Active Substance: METHOTREXATE
  4. RITUXIMAB (MOAB C2B8 ANTI CD20, CHIMERIC) [Concomitant]
     Active Substance: RITUXIMAB
  5. CYCLOPHOSPHAMIDE. [Concomitant]
     Active Substance: CYCLOPHOSPHAMIDE
  6. VINCRISTINE SULFATE. [Concomitant]
     Active Substance: VINCRISTINE SULFATE

REACTIONS (4)
  - Hypoxia [None]
  - Mucormycosis [None]
  - Dyspnoea [None]
  - Fungal test positive [None]

NARRATIVE: CASE EVENT DATE: 20191029
